FAERS Safety Report 21579637 (Version 1)
Quarter: 2022Q4

REPORT INFORMATION
  Report Type: Spontaneous
  Country: CN (occurrence: CN)
  Receive Date: 20221110
  Receipt Date: 20221110
  Transmission Date: 20230113
  Serious: Yes (Hospitalization, Other)
  Sender: FDA-Public Use
  Company Number: CN-BEIGENE-BGN-2022-010566

PATIENT

DRUGS (1)
  1. BRUKINSA [Suspect]
     Active Substance: ZANUBRUTINIB
     Indication: Chronic lymphocytic leukaemia
     Dosage: 4 CAPSULES DAILY

REACTIONS (6)
  - Pneumonia fungal [Unknown]
  - Viral infection [Unknown]
  - Cough [Unknown]
  - Urinary bladder haemorrhage [Unknown]
  - Atrial fibrillation [Unknown]
  - Cardiac failure [Unknown]
